FAERS Safety Report 7209602-0 (Version None)
Quarter: 2011Q1

REPORT INFORMATION
  Report Type: 
  Country: None (occurrence: None)
  Receive Date: 20110104
  Receipt Date: 20110103
  Transmission Date: 20110831
  Serious: Yes (Hospitalization)
  Sender: FDA-Public Use
  Company Number: IT-PFIZER INC-2011001195

PATIENT
  Age: 72 Year
  Sex: Female

DRUGS (2)
  1. ACCURETIC [Suspect]
     Dosage: 1 DF, 1X/DAY
     Route: 048
     Dates: start: 20010101, end: 20100603
  2. ACCUPRIL [Suspect]
     Dosage: 1 DF, 1X/DAY
     Route: 048
     Dates: start: 20010101, end: 20100603

REACTIONS (3)
  - BACK PAIN [None]
  - ABDOMINAL PAIN UPPER [None]
  - PAIN IN EXTREMITY [None]
